FAERS Safety Report 4557196-0 (Version None)
Quarter: 2005Q1

REPORT INFORMATION
  Report Type: 
  Country: None (occurrence: None)
  Receive Date: 20050118
  Receipt Date: 20050106
  Transmission Date: 20050727
  Serious: Yes (Other)
  Sender: FDA-Public Use
  Company Number: 2005-01-0810

PATIENT
  Age: 36 Year
  Sex: Male
  Weight: 81 kg

DRUGS (3)
  1. INTRON A [Suspect]
     Indication: HEPATITIS C
     Dosage: 10 MU QD-TIW* INTRAMUSCULAR
     Route: 030
     Dates: start: 19990901, end: 20000201
  2. INTRON A [Suspect]
     Indication: HEPATITIS C
     Dosage: 10 MU QD-TIW* INTRAMUSCULAR
     Route: 030
     Dates: end: 20000201
  3. INTRON A [Suspect]
     Indication: HEPATITIS C
     Dosage: 10 MU QD-TIW* INTRAMUSCULAR
     Route: 030
     Dates: start: 19990901

REACTIONS (5)
  - BLOOD GLUCOSE INCREASED [None]
  - HEADACHE [None]
  - HEPATIC STEATOSIS [None]
  - MUSCULOSKELETAL STIFFNESS [None]
  - VOGT-KOYANAGI-HARADA SYNDROME [None]
